FAERS Safety Report 8111724-7 (Version None)
Quarter: 2012Q1

REPORT INFORMATION
  Report Type: 
  Country: None (occurrence: None)
  Receive Date: 20120203
  Receipt Date: 20120120
  Transmission Date: 20120608
  Serious: Yes (Death, Hospitalization, Other)
  Sender: FDA-Public Use
  Company Number: FR-CELGENEUS-056-21880-11122108

PATIENT
  Sex: Male
  Weight: 66 kg

DRUGS (16)
  1. ENOXAPARIN SODIUM [Concomitant]
     Indication: THROMBOSIS PROPHYLAXIS
     Route: 065
  2. DOXORUBICIN HCL [Concomitant]
     Indication: T-CELL LYMPHOMA
     Route: 065
     Dates: start: 20111128, end: 20111202
  3. ACETYLSALICYLIC ACID SRT [Concomitant]
     Indication: ACUTE CORONARY SYNDROME
     Route: 065
  4. FINASTERIDE [Concomitant]
     Route: 065
  5. RABEPRAZOLE SODIUM [Concomitant]
     Indication: PROPHYLAXIS
     Route: 065
  6. PREDNISOLONE [Concomitant]
     Indication: T-CELL LYMPHOMA
     Route: 065
     Dates: start: 20111128, end: 20111202
  7. IRBESARTAN [Concomitant]
     Route: 065
  8. INDOMETHACIN [Concomitant]
     Indication: PROPHYLAXIS
     Route: 065
  9. REVLIMID [Suspect]
     Indication: T-CELL LYMPHOMA
     Dosage: 25 MILLIGRAM
     Route: 048
     Dates: start: 20111128, end: 20111208
  10. CYCLOPHOSPHAMIDE [Concomitant]
     Indication: T-CELL LYMPHOMA
     Route: 065
     Dates: start: 20111128, end: 20111202
  11. VINCRISTINE [Concomitant]
     Indication: T-CELL LYMPHOMA
     Route: 065
     Dates: start: 20111128, end: 20111202
  12. TIMOLOL MALEATE [Concomitant]
     Route: 065
  13. METFORMIN HCL [Concomitant]
     Route: 065
  14. LEVOCETIRIZINE DIHYDROCHLORIDE [Concomitant]
     Indication: ALLERGY PROPHYLAXIS
     Route: 065
  15. ROSUVASTATINE [Concomitant]
     Route: 065
  16. TAMSULOSIN HCL [Concomitant]
     Route: 065

REACTIONS (2)
  - SEPTIC SHOCK [None]
  - NEUTROPENIA [None]
